FAERS Safety Report 7308001-0 (Version None)
Quarter: 2011Q1

REPORT INFORMATION
  Report Type: 
  Country: None (occurrence: None)
  Receive Date: 20110223
  Receipt Date: 20110211
  Transmission Date: 20110831
  Serious: Yes (Other)
  Sender: FDA-Public Use
  Company Number: US-ROCHE-722938

PATIENT
  Sex: Male
  Weight: 99.8 kg

DRUGS (2)
  1. ACCUTANE [Suspect]
     Route: 065
     Dates: start: 19950401, end: 19951001
  2. ACCUTANE [Suspect]
     Route: 065
     Dates: start: 19940401, end: 19941001

REACTIONS (7)
  - GASTROINTESTINAL INJURY [None]
  - INTESTINAL HAEMORRHAGE [None]
  - INFLAMMATORY BOWEL DISEASE [None]
  - INTESTINAL OBSTRUCTION [None]
  - FISTULA [None]
  - CROHN'S DISEASE [None]
  - ORAL HERPES [None]
